FAERS Safety Report 16200433 (Version 4)
Quarter: 2019Q2

REPORT INFORMATION
  Report Type: Spontaneous
  Country: CA (occurrence: CA)
  Receive Date: 20190416
  Receipt Date: 20190627
  Transmission Date: 20190711
  Serious: Yes (Other)
  Sender: FDA-Public Use
  Company Number: CA-ORION CORPORATION ORION PHARMA-TREX2019-1110

PATIENT
  Age: 54 Year
  Sex: Female

DRUGS (71)
  1. ENBREL [Suspect]
     Active Substance: ETANERCEPT
     Route: 065
  2. PLAQUENIL [Suspect]
     Active Substance: HYDROXYCHLOROQUINE SULFATE
     Indication: RHEUMATOID ARTHRITIS
     Route: 065
     Dates: start: 1999, end: 2001
  3. PLAQUENIL [Suspect]
     Active Substance: HYDROXYCHLOROQUINE SULFATE
     Route: 048
  4. CIMZIA [Suspect]
     Active Substance: CERTOLIZUMAB PEGOL
     Indication: RHEUMATOID ARTHRITIS
     Route: 058
  5. TYLENOL [Suspect]
     Active Substance: ACETAMINOPHEN
     Indication: RHEUMATOID ARTHRITIS
     Route: 065
  6. MELOXICAM. [Concomitant]
     Active Substance: MELOXICAM
     Route: 065
  7. TYLENOL WITH CODEINE [Concomitant]
     Active Substance: ACETAMINOPHEN\CODEINE PHOSPHATE
     Route: 065
  8. METHOTREXATE (TRADE NAME UNKNOWN) [Suspect]
     Active Substance: METHOTREXATE
     Indication: RHEUMATOID ARTHRITIS
     Route: 065
  9. ENBREL [Suspect]
     Active Substance: ETANERCEPT
     Route: 065
  10. ENBREL [Suspect]
     Active Substance: ETANERCEPT
     Route: 065
  11. ENBREL [Suspect]
     Active Substance: ETANERCEPT
     Route: 065
  12. ARAVA [Suspect]
     Active Substance: LEFLUNOMIDE
     Route: 065
  13. REMICADE [Suspect]
     Active Substance: INFLIXIMAB
     Route: 042
  14. APO-HYDRO [Suspect]
     Active Substance: HYDROCHLOROTHIAZIDE
     Indication: RHEUMATOID ARTHRITIS
     Route: 065
  15. HYDROXYCHLOROQUINE SULFATE. [Suspect]
     Active Substance: HYDROXYCHLOROQUINE SULFATE
     Indication: RHEUMATOID ARTHRITIS
     Route: 065
  16. METHOTREXATE (TRADE NAME UNKNOWN) [Suspect]
     Active Substance: METHOTREXATE
     Dosage: 2.5 MG/ML
     Route: 058
     Dates: start: 2001
  17. ENBREL [Suspect]
     Active Substance: ETANERCEPT
     Dosage: FOUR EVERY ONE WEEK
     Route: 065
  18. ARAVA [Suspect]
     Active Substance: LEFLUNOMIDE
     Indication: RHEUMATOID ARTHRITIS
     Route: 048
     Dates: start: 20030625, end: 200310
  19. REMICADE [Suspect]
     Active Substance: INFLIXIMAB
     Route: 042
  20. ORENCIA [Suspect]
     Active Substance: ABATACEPT
     Route: 065
  21. RITUXAN [Suspect]
     Active Substance: RITUXIMAB
     Indication: RHEUMATOID ARTHRITIS
     Route: 042
  22. RITUXAN [Suspect]
     Active Substance: RITUXIMAB
     Route: 058
  23. XELJANZ [Concomitant]
     Active Substance: TOFACITINIB CITRATE
     Route: 065
  24. ARAVA [Suspect]
     Active Substance: LEFLUNOMIDE
     Route: 065
  25. PLAQUENIL [Suspect]
     Active Substance: HYDROXYCHLOROQUINE SULFATE
     Route: 065
  26. HYDROXYCHLOROQUINE [Suspect]
     Active Substance: HYDROXYCHLOROQUINE
     Indication: RHEUMATOID ARTHRITIS
     Route: 065
  27. APO-PREDNISONE [Suspect]
     Active Substance: PREDNISONE
     Indication: RHEUMATOID ARTHRITIS
     Route: 065
  28. ACETAMINOPHEN AND CODEINE [Suspect]
     Active Substance: ACETAMINOPHEN\CODEINE PHOSPHATE
     Indication: PRODUCT USED FOR UNKNOWN INDICATION
     Route: 065
  29. HYDROMORPHONE HCL [Concomitant]
     Active Substance: HYDROMORPHONE HYDROCHLORIDE
     Route: 065
  30. METHOTREXATE. [Concomitant]
     Active Substance: METHOTREXATE
     Route: 065
  31. ENBREL [Suspect]
     Active Substance: ETANERCEPT
     Route: 065
  32. ENBREL [Suspect]
     Active Substance: ETANERCEPT
     Route: 065
  33. SULFASALAZINE. [Suspect]
     Active Substance: SULFASALAZINE
     Indication: RHEUMATOID ARTHRITIS
     Route: 048
     Dates: start: 200707, end: 200712
  34. ARAVA [Suspect]
     Active Substance: LEFLUNOMIDE
     Route: 065
  35. CIMZIA [Suspect]
     Active Substance: CERTOLIZUMAB PEGOL
     Route: 058
  36. HUMIRA [Suspect]
     Active Substance: ADALIMUMAB
     Indication: RHEUMATOID ARTHRITIS
     Route: 058
  37. ORENCIA [Suspect]
     Active Substance: ABATACEPT
     Indication: RHEUMATOID ARTHRITIS
     Route: 065
  38. ACETAMINOPHEN AND DIPHENHYDRAMINE HYDROCHLORIDE [Suspect]
     Active Substance: ACETAMINOPHEN\DIPHENHYDRAMINE HYDROCHLORIDE
     Indication: PRODUCT USED FOR UNKNOWN INDICATION
     Route: 065
  39. APO-LEFLUNOMIDE [Suspect]
     Active Substance: LEFLUNOMIDE
     Indication: PRODUCT USED FOR UNKNOWN INDICATION
     Route: 065
  40. SYNTHROID [Concomitant]
     Active Substance: LEVOTHYROXINE SODIUM
     Route: 065
  41. CELEBREX [Concomitant]
     Active Substance: CELECOXIB
     Route: 065
  42. METHOTREXATE (TRADE NAME UNKNOWN) [Suspect]
     Active Substance: METHOTREXATE
     Route: 065
  43. ENBREL [Suspect]
     Active Substance: ETANERCEPT
     Route: 065
     Dates: end: 20160210
  44. ENBREL [Suspect]
     Active Substance: ETANERCEPT
     Dosage: FOUR EVERY ONE WEEK
     Route: 065
  45. ENBREL [Suspect]
     Active Substance: ETANERCEPT
     Route: 065
  46. SULFASALAZINE. [Suspect]
     Active Substance: SULFASALAZINE
     Route: 048
  47. SULFASALAZINE. [Suspect]
     Active Substance: SULFASALAZINE
     Route: 048
  48. HUMIRA [Suspect]
     Active Substance: ADALIMUMAB
     Route: 065
  49. REMICADE [Suspect]
     Active Substance: INFLIXIMAB
     Indication: RHEUMATOID ARTHRITIS
     Route: 042
  50. APO-HYDROXYQUINE [Suspect]
     Active Substance: HYDROXYCHLOROQUINE SULFATE
     Indication: RHEUMATOID ARTHRITIS
     Route: 065
  51. APO-ACETAMINOPHEN [Suspect]
     Active Substance: ACETAMINOPHEN
     Indication: PRODUCT USED FOR UNKNOWN INDICATION
     Route: 065
  52. LEFLUNOMIDE. [Suspect]
     Active Substance: LEFLUNOMIDE
     Indication: PRODUCT USED FOR UNKNOWN INDICATION
     Route: 065
     Dates: start: 20030625, end: 200310
  53. APO SULFASALAZINE [Suspect]
     Active Substance: SULFASALAZINE
     Indication: PRODUCT USED FOR UNKNOWN INDICATION
     Route: 065
  54. METHOTREXATE (TRADE NAME UNKNOWN) [Suspect]
     Active Substance: METHOTREXATE
     Route: 058
  55. SULFASALAZINE. [Suspect]
     Active Substance: SULFASALAZINE
     Route: 048
  56. ARAVA [Suspect]
     Active Substance: LEFLUNOMIDE
     Route: 065
  57. PLAQUENIL [Suspect]
     Active Substance: HYDROXYCHLOROQUINE SULFATE
     Route: 065
  58. SIMPONI [Suspect]
     Active Substance: GOLIMUMAB
     Indication: RHEUMATOID ARTHRITIS
     Route: 058
  59. ACTEMRA [Suspect]
     Active Substance: TOCILIZUMAB
     Indication: RHEUMATOID ARTHRITIS
     Route: 065
  60. CODEINE [Concomitant]
     Active Substance: CODEINE
     Route: 065
  61. METHOTREXATE (TRADE NAME UNKNOWN) [Suspect]
     Active Substance: METHOTREXATE
     Route: 065
  62. METHOTREXATE (TRADE NAME UNKNOWN) [Suspect]
     Active Substance: METHOTREXATE
     Dosage: 4 EVERY 1 WEEK
     Route: 058
  63. ENBREL [Suspect]
     Active Substance: ETANERCEPT
     Indication: RHEUMATOID ARTHRITIS
     Route: 065
     Dates: start: 200310, end: 2006
  64. SULFASALAZINE. [Suspect]
     Active Substance: SULFASALAZINE
     Route: 048
  65. SULFASALAZINE. [Suspect]
     Active Substance: SULFASALAZINE
     Route: 065
  66. SULFASALAZINE. [Suspect]
     Active Substance: SULFASALAZINE
     Route: 065
  67. SIMPONI [Suspect]
     Active Substance: GOLIMUMAB
     Route: 065
  68. ORENCIA [Suspect]
     Active Substance: ABATACEPT
     Route: 065
  69. HYDROXYCHLOROQUINE [Suspect]
     Active Substance: HYDROXYCHLOROQUINE
     Route: 048
  70. ACETAMINOPHEN. [Suspect]
     Active Substance: ACETAMINOPHEN
     Indication: RHEUMATOID ARTHRITIS
     Route: 065
  71. ACETAMINOPHEN W/CODEINE PHOSPHATE [Concomitant]
     Active Substance: ACETAMINOPHEN\CODEINE PHOSPHATE
     Route: 065

REACTIONS (16)
  - Contraindicated product administered [Not Recovered/Not Resolved]
  - Pain in extremity [Not Recovered/Not Resolved]
  - Fatigue [Not Recovered/Not Resolved]
  - Condition aggravated [Not Recovered/Not Resolved]
  - Gait disturbance [Not Recovered/Not Resolved]
  - Rheumatoid arthritis [Not Recovered/Not Resolved]
  - Malaise [Not Recovered/Not Resolved]
  - Peripheral swelling [Not Recovered/Not Resolved]
  - Arthropathy [Not Recovered/Not Resolved]
  - Loss of personal independence in daily activities [Not Recovered/Not Resolved]
  - Somnolence [Not Recovered/Not Resolved]
  - Pain [Not Recovered/Not Resolved]
  - Arthralgia [Not Recovered/Not Resolved]
  - Joint swelling [Not Recovered/Not Resolved]
  - Red blood cell sedimentation rate increased [Not Recovered/Not Resolved]
  - C-reactive protein abnormal [Not Recovered/Not Resolved]

NARRATIVE: CASE EVENT DATE: 20160210
